FAERS Safety Report 14793785 (Version 1)
Quarter: 2018Q2

REPORT INFORMATION
  Report Type: Spontaneous
  Country: US (occurrence: US)
  Receive Date: 20180423
  Receipt Date: 20180423
  Transmission Date: 20180711
  Serious: Yes (Hospitalization, Other)
  Sender: FDA-Public Use
  Company Number: US-BAYER-2018-075018

PATIENT
  Age: 44 Year
  Sex: Female

DRUGS (2)
  1. ACETYLSALICYLIC ACID + PARACETAMOL + CAFFEINE [Suspect]
     Active Substance: ACETAMINOPHEN\ASPIRIN\CAFFEINE
     Indication: HEADACHE
  2. IBUPROFEN. [Suspect]
     Active Substance: IBUPROFEN
     Indication: HEADACHE

REACTIONS (6)
  - Gastritis [Recovered/Resolved]
  - Bezoar [Recovered/Resolved]
  - Oesophagitis [Recovered/Resolved]
  - Obstruction gastric [Recovered/Resolved]
  - Duodenal stenosis [Recovered/Resolved]
  - Duodenal ulcer [Recovered/Resolved]
